FAERS Safety Report 7379590-5 (Version None)
Quarter: 2011Q1

REPORT INFORMATION
  Report Type: 
  Country: None (occurrence: None)
  Receive Date: 20110329
  Receipt Date: 20090925
  Transmission Date: 20110831
  Serious: No
  Sender: FDA-Public Use
  Company Number: 2009BI031036

PATIENT
  Age: 50 Year
  Sex: Female

DRUGS (1)
  1. TYSABRI [Suspect]
     Indication: MULTIPLE SCLEROSIS
     Route: 042
     Dates: start: 20080311

REACTIONS (4)
  - FIBROMYALGIA [None]
  - FATIGUE [None]
  - BLOOD PRESSURE DECREASED [None]
  - HEADACHE [None]
